FAERS Safety Report 6402465-2 (Version None)
Quarter: 2009Q4

REPORT INFORMATION
  Report Type: 
  Country: None (occurrence: None)
  Receive Date: 20091015
  Receipt Date: 20091008
  Transmission Date: 20100525
  Serious: Yes (Hospitalization, Other)
  Sender: FDA-Public Use
  Company Number: CA-ABBOTT-09P-028-0600931-00

PATIENT
  Sex: Female
  Weight: 77.18 kg

DRUGS (6)
  1. HUMIRA [Suspect]
     Indication: RHEUMATOID ARTHRITIS
     Route: 058
     Dates: start: 20060608, end: 20091003
  2. PREDNISONE [Concomitant]
     Indication: DRUG USE FOR UNKNOWN INDICATION
  3. CALCIUM [Concomitant]
     Indication: DRUG USE FOR UNKNOWN INDICATION
  4. PANTOPRAZOLE [Concomitant]
     Indication: DRUG USE FOR UNKNOWN INDICATION
  5. ACTONEL [Concomitant]
     Indication: DRUG USE FOR UNKNOWN INDICATION
  6. MOBICOX [Concomitant]
     Indication: DRUG USE FOR UNKNOWN INDICATION

REACTIONS (17)
  - ARTHRALGIA [None]
  - ARTHROPATHY [None]
  - ASTHENIA [None]
  - CONDITION AGGRAVATED [None]
  - FALL [None]
  - FATIGUE [None]
  - GAIT DISTURBANCE [None]
  - HYPOPHAGIA [None]
  - INFECTION [None]
  - INSOMNIA [None]
  - KNEE ARTHROPLASTY [None]
  - MUSCULOSKELETAL PAIN [None]
  - NASOPHARYNGITIS [None]
  - PAIN IN EXTREMITY [None]
  - PNEUMONIA [None]
  - RED BLOOD CELL SEDIMENTATION RATE ABNORMAL [None]
  - WEIGHT DECREASED [None]
